FAERS Safety Report 6525778-2 (Version None)
Quarter: 2009Q4

REPORT INFORMATION
  Report Type: 
  Country: None (occurrence: None)
  Receive Date: 20091228
  Receipt Date: 20091221
  Transmission Date: 20100525
  Serious: Yes (Other)
  Sender: FDA-Public Use
  Company Number: 230133J09DEU

PATIENT
  Age: 53 Year
  Sex: Female
  Weight: 80 kg

DRUGS (2)
  1. REBIF [Suspect]
     Indication: MULTIPLE SCLEROSIS
     Dosage: 22, 3 IN 1 WEEKS
     Dates: start: 20091009
  2. BISOPROLOL (BISOPROLOL / 00802601/) [Concomitant]

REACTIONS (1)
  - BLOOD PRESSURE INCREASED [None]
